FAERS Safety Report 16844516 (Version 1)
Quarter: 2019Q3

REPORT INFORMATION
  Report Type: Spontaneous
  Country: ES (occurrence: ES)
  Receive Date: 20190924
  Receipt Date: 20190924
  Transmission Date: 20191005
  Serious: Yes (Other)
  Sender: FDA-Public Use
  Company Number: ES-JNJFOC-20190922458

PATIENT
  Age: 65 Year
  Sex: Male
  Weight: 55 kg

DRUGS (1)
  1. SYMTUZA [Suspect]
     Active Substance: COBICISTAT\DARUNAVIR\EMTRICITABINE\TENOFOVIR ALAFENAMIDE
     Indication: HIV INFECTION
     Route: 048
     Dates: start: 20190321, end: 20190801

REACTIONS (1)
  - Hepatitis [Recovering/Resolving]

NARRATIVE: CASE EVENT DATE: 20190801
